FAERS Safety Report 5598571-5 (Version None)
Quarter: 2008Q1

REPORT INFORMATION
  Report Type: 
  Country: None (occurrence: None)
  Receive Date: 20080122
  Receipt Date: 20080115
  Transmission Date: 20080703
  Serious: Yes (Hospitalization)
  Sender: FDA-Public Use
  Company Number: FR-ELI_LILLY_AND_COMPANY-FR200801003855

PATIENT
  Age: 75 Year
  Sex: Female

DRUGS (3)
  1. FORTEO [Suspect]
     Indication: OSTEOPOROSIS
     Dosage: 20 UG, DAILY (1/D)
     Route: 058
  2. UN-ALFA [Concomitant]
     Dosage: 3 D/F, DAILY (1/D)
     Route: 048
  3. CALCIUM GLUCONATE [Concomitant]

REACTIONS (2)
  - HYPERCALCAEMIA [None]
  - RENAL FAILURE [None]
